FAERS Safety Report 4339820-0 (Version None)
Quarter: 2004Q2

REPORT INFORMATION
  Report Type: 
  Country: None (occurrence: None)
  Receive Date: 20040415
  Receipt Date: 20040415
  Transmission Date: 20050107
  Serious: Yes (Other)
  Sender: FDA-Public Use
  Company Number: None

PATIENT
  Age: 52 Year
  Sex: Female
  Weight: 83 kg

DRUGS (11)
  1. THALIDOMIDE 100 MG PO QHS 4/13/04 [Suspect]
     Indication: MULTIPLE MYELOMA
     Dosage: PO   QHS
     Route: 048
     Dates: start: 20040413
  2. VINCRISTINE  Q 28 DAY CYCLE NEXT CYCLE STARTS 04/20/2004 [Suspect]
     Dosage: Q 28 DAY CYCLE
     Dates: start: 20040420
  3. ADRIMYCIN Q 28 DAY CYCLE NEXT CYCLE STARTS 4/20/04 [Suspect]
     Dosage: Q 28 DAY CYCLE
     Dates: start: 20040420
  4. DEXAMETHASONE Q 28 DAY CYCLE NEXT CYCLE STARTS 4/20/04 [Suspect]
     Dosage: Q 28 DAY CYCLE
     Dates: start: 20040420
  5. THALIDOMIDE [Concomitant]
  6. COLACE [Concomitant]
  7. COUMADIN [Concomitant]
  8. COMPAZINE [Concomitant]
  9. SENOKOT [Concomitant]
  10. LORTAB [Concomitant]
  11. IBUPROFEN [Concomitant]

REACTIONS (1)
  - PULMONARY HYPERTENSION [None]
